FAERS Safety Report 17666067 (Version 1)
Quarter: 2020Q2

REPORT INFORMATION
  Report Type: Report from Study
  Country: None (occurrence: US)
  Receive Date: 20200414
  Receipt Date: 20200414
  Transmission Date: 20200713
  Serious: Yes (Other)
  Sender: FDA-Public Use
  Company Number: US-ABBVIE-20K-163-3225562-00

PATIENT
  Age: 59 Year
  Sex: Female

DRUGS (1)
  1. HUMIRA [Suspect]
     Active Substance: ADALIMUMAB
     Indication: RHEUMATOID ARTHRITIS
     Route: 058
     Dates: end: 20191214

REACTIONS (7)
  - Wheezing [Recovered/Resolved]
  - Bronchitis [Recovered/Resolved]
  - Diverticulitis [Recovered/Resolved]
  - Fall [Recovered/Resolved]
  - Mycobacterium tuberculosis complex test positive [Recovering/Resolving]
  - Foot fracture [Recovered/Resolved]
  - Joint stiffness [Not Recovered/Not Resolved]

NARRATIVE: CASE EVENT DATE: 201912
